FAERS Safety Report 10483753 (Version 1)
Quarter: 2014Q3

REPORT INFORMATION
  Report Type: Spontaneous
  Country: US (occurrence: None)
  Receive Date: 20140929
  Receipt Date: 20140929
  Transmission Date: 20150326
  Serious: Yes (Hospitalization)
  Sender: FDA-Public Use
  Company Number: None

PATIENT
  Age: 83 Year
  Sex: Female
  Weight: 49.9 kg

DRUGS (1)
  1. TELMISARTAN. [Suspect]
     Active Substance: TELMISARTAN
     Indication: HYPERTENSION
     Dosage: ONE PILL OER DAY 40 MG?ONCE DAILY?TAKEN BY MOUTH
     Route: 048
     Dates: start: 20140917, end: 20140923

REACTIONS (1)
  - Rash [None]

NARRATIVE: CASE EVENT DATE: 20140919
